FAERS Safety Report 24792031 (Version 1)
Quarter: 2024Q4

REPORT INFORMATION
  Report Type: Spontaneous
  Country: US (occurrence: US)
  Receive Date: 20241231
  Receipt Date: 20241231
  Transmission Date: 20250114
  Serious: No
  Sender: JOHNSON AND JOHNSON
  Company Number: US-JNJFOC-20241255886

PATIENT
  Age: 55 Year
  Sex: Female

DRUGS (11)
  1. OPSUMIT [Suspect]
     Active Substance: MACITENTAN
     Indication: Product used for unknown indication
     Route: 048
  2. TREPROSTINIL SODIUM [Suspect]
     Active Substance: TREPROSTINIL SODIUM
     Indication: Pulmonary arterial hypertension
     Route: 042
     Dates: start: 20181017
  3. POTASSIUM CHLORIDE [Concomitant]
     Active Substance: POTASSIUM CHLORIDE
  4. METOLAZONE [Concomitant]
     Active Substance: METOLAZONE
  5. MOUNJARO [Concomitant]
     Active Substance: TIRZEPATIDE
  6. BUMETANIDE [Concomitant]
     Active Substance: BUMETANIDE
  7. SPIRONOLACTONE [Concomitant]
     Active Substance: SPIRONOLACTONE
  8. OXYGEN [Concomitant]
     Active Substance: OXYGEN
  9. MODERNA COVID-19 VACCINE [Concomitant]
     Active Substance: ELASOMERAN
  10. ASPIRIN [Concomitant]
     Active Substance: ASPIRIN
  11. BENZONATATE [Concomitant]
     Active Substance: BENZONATATE

REACTIONS (1)
  - Hypoacusis [Unknown]
